FAERS Safety Report 5850570-1 (Version None)
Quarter: 2008Q3

REPORT INFORMATION
  Report Type: 
  Country: None (occurrence: None)
  Receive Date: 20080820
  Receipt Date: 20080815
  Transmission Date: 20090109
  Serious: Yes (Life-Threatening, Hospitalization)
  Sender: FDA-Public Use
  Company Number: US-JNJFOC-20080603010

PATIENT
  Sex: Male
  Weight: 63.05 kg

DRUGS (11)
  1. PREZISTA [Suspect]
     Route: 048
  2. PREZISTA [Suspect]
     Indication: HIV INFECTION
     Dosage: TEMPORARY STOP
     Route: 048
  3. RITONAVIR [Suspect]
     Indication: HIV INFECTION
     Dosage: TEMPORARY STOP
     Route: 048
  4. BACTRIM DS [Concomitant]
     Indication: OPPORTUNISTIC INFECTION PROPHYLAXIS
     Route: 048
  5. ZITHROMAX [Concomitant]
     Indication: OPPORTUNISTIC INFECTION PROPHYLAXIS
     Route: 048
  6. PERCOCET [Concomitant]
     Indication: ARTHRALGIA
     Route: 048
  7. RELAFEN [Concomitant]
     Indication: ARTHRALGIA
     Route: 048
  8. VALTREX [Concomitant]
     Indication: ANAL ULCER
     Route: 048
  9. VALTREX [Concomitant]
     Indication: HERPES SIMPLEX
     Route: 048
  10. ZOVIRAX [Concomitant]
     Indication: ANAL ULCER
     Route: 061
  11. ZOVIRAX [Concomitant]
     Indication: HERPES SIMPLEX
     Route: 061

REACTIONS (2)
  - DEEP VEIN THROMBOSIS [None]
  - PULMONARY EMBOLISM [None]
